FAERS Safety Report 8921223 (Version 1)
Quarter: 2012Q4

REPORT INFORMATION
  Report Type: 
  Country: US (occurrence: US)
  Receive Date: 20121122
  Receipt Date: 20121122
  Transmission Date: 20130627
  Serious: No
  Sender: FDA-Public Use
  Company Number: US-009507513-1211USA007849

PATIENT
  Sex: Female

DRUGS (2)
  1. NASONEX [Suspect]
     Route: 055
  2. BROVANA [Concomitant]

REACTIONS (1)
  - Epistaxis [Unknown]
